FAERS Safety Report 18082168 (Version 1)
Quarter: 2020Q3

REPORT INFORMATION
  Report Type: Spontaneous
  Country: US (occurrence: US)
  Receive Date: 20200728
  Receipt Date: 20200728
  Transmission Date: 20201103
  Serious: No
  Sender: FDA-Public Use
  Company Number: US-PERRIGO-19US013005

PATIENT
  Age: 28 Year
  Sex: Male
  Weight: 84.81 kg

DRUGS (1)
  1. MINOXIDIL. [Suspect]
     Active Substance: MINOXIDIL
     Indication: HYPOTRICHOSIS
     Dosage: 1 ML TO 1.5 ML, BID
     Route: 061
     Dates: start: 20191027

REACTIONS (2)
  - Product administered at inappropriate site [Not Recovered/Not Resolved]
  - Off label use [Not Recovered/Not Resolved]

NARRATIVE: CASE EVENT DATE: 20191027
